FAERS Safety Report 24433066 (Version 1)
Quarter: 2024Q4

REPORT INFORMATION
  Report Type: Report from Study
  Country: ES (occurrence: ES)
  Receive Date: 20241014
  Receipt Date: 20241014
  Transmission Date: 20250115
  Serious: Yes (Life-Threatening, Hospitalization)
  Sender: MYLAN
  Company Number: None

PATIENT
  Age: 41 Year
  Sex: Male

DRUGS (2)
  1. MYCOPHENOLATE MOFETIL [Interacting]
     Active Substance: MYCOPHENOLATE MOFETIL
     Indication: Liver transplant
     Dosage: 1 GRAM, QD
     Route: 048
     Dates: start: 201606
  2. PREDNISOLONE [Interacting]
     Active Substance: PREDNISOLONE
     Indication: Liver transplant
     Dosage: 5 MILLIGRAM, QD
     Route: 048
     Dates: start: 201606, end: 20160729

REACTIONS (3)
  - Cytomegalovirus infection [Not Recovered/Not Resolved]
  - Diarrhoea [Not Recovered/Not Resolved]
  - Drug interaction [Unknown]

NARRATIVE: CASE EVENT DATE: 20160717
